FAERS Safety Report 4286545-6 (Version None)
Quarter: 2004Q1

REPORT INFORMATION
  Report Type: 
  Country: None (occurrence: None)
  Receive Date: 20040205
  Receipt Date: 20040127
  Transmission Date: 20041129
  Serious: Yes (Hospitalization, Other)
  Sender: FDA-Public Use
  Company Number: 04-01-0169

PATIENT
  Age: 68 Year
  Sex: Male

DRUGS (3)
  1. ALBUTEROL SULFATE [Suspect]
     Indication: ASTHMA
     Dosage: INHALATION
     Route: 055
  2. OXYTETRACYCLINE [Suspect]
     Indication: LOWER RESPIRATORY TRACT INFECTION
  3. AMOXICILLIN [Concomitant]

REACTIONS (3)
  - ANOXIA [None]
  - BRONCHOSPASM [None]
  - DRUG INTERACTION [None]
